FAERS Safety Report 9998902 (Version 1)
Quarter: 2014Q1

REPORT INFORMATION
  Report Type: Spontaneous
  Country: US (occurrence: US)
  Receive Date: 20140312
  Receipt Date: 20140312
  Transmission Date: 20141002
  Serious: Yes (Hospitalization)
  Sender: FDA-Public Use
  Company Number: US-BRISTOL-MYERS SQUIBB COMPANY-20343778

PATIENT
  Age: 54 Year
  Sex: Female

DRUGS (6)
  1. ABATACEPT SUBQ INJECTION 125MG/ML [Suspect]
     Indication: RHEUMATOID ARTHRITIS
     Dosage: 22FEB2014
     Route: 058
     Dates: start: 201311
  2. PREDNISONE [Concomitant]
  3. METHOTREXATE [Concomitant]
     Dosage: 8 PILLS
  4. DIOVAN [Concomitant]
  5. ALENDRONATE SODIUM [Concomitant]
  6. HYDROCODONE + ACETAMINOPHEN [Concomitant]
     Dosage: EVERY 4-6 HOURS

REACTIONS (2)
  - Pleurisy [Unknown]
  - Drug ineffective [Unknown]
